FAERS Safety Report 19192067 (Version 10)
Quarter: 2021Q4

REPORT INFORMATION
  Report Type: Report from Study
  Country: BR (occurrence: BR)
  Receive Date: 20210428
  Receipt Date: 20211201
  Transmission Date: 20220303
  Serious: Yes (Death, Life-Threatening, Hospitalization)
  Sender: FDA-Public Use
  Company Number: BR-CELGENE-BRA-20210300276

PATIENT
  Age: 66 Year
  Sex: Female
  Weight: 59 kg

DRUGS (11)
  1. AZACITIDINE [Suspect]
     Active Substance: AZACITIDINE
     Indication: Acute myeloid leukaemia
     Dosage: 20 MILLIGRAM
     Route: 058
     Dates: start: 20210218
  2. AZACITIDINE [Suspect]
     Active Substance: AZACITIDINE
     Dosage: 20 MILLIGRAM
     Route: 058
     Dates: start: 20210222, end: 20210224
  3. IVOSIDENIB [Suspect]
     Active Substance: IVOSIDENIB
     Indication: Acute myeloid leukaemia
     Dosage: 500 MILLIGRAM
     Route: 048
     Dates: start: 20210218
  4. IVOSIDENIB [Suspect]
     Active Substance: IVOSIDENIB
     Dosage: 500 MILLIGRAM
     Route: 048
     Dates: start: 20210222
  5. IVOSIDENIB [Suspect]
     Active Substance: IVOSIDENIB
     Dosage: 500 MILLIGRAM
     Route: 048
     Dates: start: 20210327, end: 20210329
  6. ACYCLOVIR SODIUM [Concomitant]
     Active Substance: ACYCLOVIR SODIUM
     Indication: Antifungal prophylaxis
     Dosage: 200 MILLIGRAM
     Route: 048
     Dates: start: 20210126
  7. OMEPRAZOLE SODIUM [Concomitant]
     Active Substance: OMEPRAZOLE SODIUM
     Indication: Stress ulcer
     Dosage: 20 MILLIGRAM
     Route: 065
     Dates: start: 20210126
  8. ITRACONAZOLE [Concomitant]
     Active Substance: ITRACONAZOLE
     Indication: Antifungal prophylaxis
     Dosage: 500 MILLIGRAM
     Route: 065
     Dates: start: 20210126, end: 20210309
  9. SULFAMETHOXAZOLE AND TRIMETHOPRIM [Concomitant]
     Active Substance: SULFAMETHOXAZOLE\TRIMETHOPRIM
     Indication: Antibiotic prophylaxis
     Dosage: 400/80 MG, EVERY 12 HOURS 3 TIMES A WEEK
     Route: 048
     Dates: start: 20210126
  10. LEVOFLOXACIN [Concomitant]
     Active Substance: LEVOFLOXACIN
     Indication: Antibiotic prophylaxis
     Dosage: 500 MILLIGRAM
     Route: 048
     Dates: start: 20210211, end: 20210222
  11. CYTARABINE [Concomitant]
     Active Substance: CYTARABINE
     Indication: Acute myeloid leukaemia
     Route: 065

REACTIONS (2)
  - Pneumonia [Fatal]
  - Febrile neutropenia [Not Recovered/Not Resolved]

NARRATIVE: CASE EVENT DATE: 20210222
